FAERS Safety Report 19240945 (Version 1)
Quarter: 2021Q2

REPORT INFORMATION
  Report Type: Spontaneous
  Country: US (occurrence: US)
  Receive Date: 20210510
  Receipt Date: 20210510
  Transmission Date: 20210717
  Serious: Yes (Other)
  Sender: FDA-Public Use
  Company Number: None

PATIENT
  Age: 19 Year
  Sex: Female
  Weight: 63 kg

DRUGS (2)
  1. MONOFERRIC [Suspect]
     Active Substance: FERRIC DERISOMALTOSE
     Indication: IRON DEFICIENCY ANAEMIA
     Dosage: ?          OTHER FREQUENCY:X1 DOSE;?
     Route: 041
  2. MONOFERRIC [Concomitant]
     Active Substance: FERRIC DERISOMALTOSE
     Dates: start: 20210510, end: 20210510

REACTIONS (1)
  - Infusion related reaction [None]

NARRATIVE: CASE EVENT DATE: 20210510
